FAERS Safety Report 14441992 (Version 1)
Quarter: 2018Q1

REPORT INFORMATION
  Report Type: Report from Study
  Country: None (occurrence: ES)
  Receive Date: 20180125
  Receipt Date: 20180125
  Transmission Date: 20180509
  Serious: Yes (Hospitalization, Other)
  Sender: FDA-Public Use
  Company Number: ES-ABBVIE-18P-144-2228795-00

PATIENT
  Age: 71 Year
  Sex: Male

DRUGS (9)
  1. DUODOPA [Suspect]
     Active Substance: CARBIDOPA\LEVODOPA
     Dosage: 16 HR/DAY; MD: 8, CD: 2.8, ED 2, NUMBER OF EXTRA DOSES PER DAY 3
     Route: 050
     Dates: start: 20170526
  2. AZILECT [Concomitant]
     Active Substance: RASAGILINE MESYLATE
     Indication: PARKINSON^S DISEASE
     Route: 048
     Dates: start: 19960101, end: 20170529
  3. SINEMET RETARD [Concomitant]
     Dosage: 50/200MG QD
     Route: 048
     Dates: start: 19970101
  4. ATORVASTATINA [Concomitant]
     Active Substance: ATORVASTATIN
     Indication: BLOOD CHOLESTEROL INCREASED
     Route: 048
     Dates: start: 20090101
  5. ADIRO [Concomitant]
     Active Substance: ASPIRIN
     Indication: ANTICOAGULANT THERAPY
     Route: 048
     Dates: start: 19980301
  6. PERMIXON [Concomitant]
     Active Substance: HERBALS\SAW PALMETTO
     Indication: BENIGN PROSTATIC HYPERPLASIA
     Route: 048
     Dates: start: 20170324
  7. DUODOPA [Suspect]
     Active Substance: CARBIDOPA\LEVODOPA
     Indication: PARKINSON^S DISEASE
     Dosage: 16 HR/DAY; MD: 6, CD: 2.3, ED 2, NUMBER OF EXTRA DOSES PER DAY 16
     Route: 050
     Dates: start: 20170503, end: 20170525
  8. OPRYMEA [Concomitant]
     Active Substance: PRAMIPEXOLE DIHYDROCHLORIDE
     Indication: PARKINSON^S DISEASE
     Route: 048
     Dates: start: 19960601, end: 20170529
  9. SINEMET RETARD [Concomitant]
     Indication: PARKINSON^S DISEASE
     Dosage: 50/200MG TID
     Route: 048
     Dates: start: 19970101

REACTIONS (1)
  - Myocardial ischaemia [Recovered/Resolved]

NARRATIVE: CASE EVENT DATE: 20171004
